FAERS Safety Report 15165985 (Version 1)
Quarter: 2018Q3

REPORT INFORMATION
  Report Type: Spontaneous
  Country: JP (occurrence: JP)
  Receive Date: 20180719
  Receipt Date: 20180719
  Transmission Date: 20181010
  Serious: Yes (Hospitalization)
  Sender: FDA-Public Use
  Company Number: JP-GLAXOSMITHKLINE-JP2018JPN126495

PATIENT
  Sex: Female

DRUGS (2)
  1. TALION (JAPAN) [Concomitant]
     Active Substance: BEPOTASTINE
     Dosage: UNK
  2. ALLERMIST [Suspect]
     Active Substance: FLUTICASONE FUROATE
     Indication: RHINITIS ALLERGIC
     Dosage: UNK
     Route: 045
     Dates: start: 201803

REACTIONS (1)
  - Complicated fracture [Recovering/Resolving]

NARRATIVE: CASE EVENT DATE: 201803
